FAERS Safety Report 7047349-4 (Version None)
Quarter: 2010Q4

REPORT INFORMATION
  Report Type: 
  Country: None (occurrence: None)
  Receive Date: 20101015
  Receipt Date: 20101012
  Transmission Date: 20110411
  Serious: Yes (Death)
  Sender: FDA-Public Use
  Company Number: PHHY2010US55631

PATIENT
  Sex: Female

DRUGS (2)
  1. EXJADE [Suspect]
     Indication: BREAST CANCER FEMALE
     Dosage: 1000 MG, QD
     Route: 048
  2. EXJADE [Suspect]
     Indication: IRON OVERLOAD

REACTIONS (4)
  - BREAST CANCER METASTATIC [None]
  - DRUG INEFFECTIVE [None]
  - METASTASES TO LUNG [None]
  - RESPIRATORY FAILURE [None]
